FAERS Safety Report 17952299 (Version 2)
Quarter: 2020Q4

REPORT INFORMATION
  Report Type: Spontaneous
  Country: US (occurrence: US)
  Receive Date: 20200626
  Receipt Date: 20201104
  Transmission Date: 20210113
  Serious: No
  Sender: FDA-Public Use
  Company Number: US-ELI_LILLY_AND_COMPANY-US202006009289

PATIENT
  Sex: Male
  Weight: 115.6 kg

DRUGS (10)
  1. TALTZ [Suspect]
     Active Substance: IXEKIZUMAB
     Indication: PSORIATIC ARTHROPATHY
     Dosage: 80 MG, MONTHLY (1/M)
     Route: 058
  2. TALTZ [Suspect]
     Active Substance: IXEKIZUMAB
     Indication: PSORIATIC ARTHROPATHY
     Dosage: 80 MG, MONTHLY (1/M)
     Route: 058
  3. TALTZ [Suspect]
     Active Substance: IXEKIZUMAB
     Indication: PSORIASIS
     Dosage: 80 MG, MONTHLY (1/M)
     Route: 058
     Dates: start: 2017
  4. TALTZ [Suspect]
     Active Substance: IXEKIZUMAB
     Indication: PSORIASIS
     Dosage: 80 MG, MONTHLY (1/M)
     Route: 058
     Dates: start: 2017
  5. TALTZ [Suspect]
     Active Substance: IXEKIZUMAB
     Indication: PSORIATIC ARTHROPATHY
     Dosage: 80 MG, MONTHLY (1/M)
     Route: 058
  6. TALTZ [Suspect]
     Active Substance: IXEKIZUMAB
     Indication: PSORIASIS
     Dosage: 80 MG, MONTHLY (1/M)
     Route: 058
     Dates: start: 2017
  7. TALTZ [Suspect]
     Active Substance: IXEKIZUMAB
     Dosage: 80 MG, MONTHLY (1/M)
     Route: 058
  8. TALTZ [Suspect]
     Active Substance: IXEKIZUMAB
     Dosage: 80 MG, MONTHLY (1/M)
     Route: 058
  9. TALTZ [Suspect]
     Active Substance: IXEKIZUMAB
     Dosage: 80 MG, MONTHLY (1/M)
     Route: 058
  10. TALTZ [Suspect]
     Active Substance: IXEKIZUMAB
     Indication: PSORIASIS
     Dosage: 80 MG, MONTHLY (1/M)
     Route: 058
     Dates: start: 2017

REACTIONS (5)
  - Product dose omission issue [Unknown]
  - Product administered at inappropriate site [Unknown]
  - Pain [Not Recovered/Not Resolved]
  - Injection site pain [Unknown]
  - Therapeutic product effect decreased [Unknown]
